FAERS Safety Report 7194403-2 (Version None)
Quarter: 2010Q4

REPORT INFORMATION
  Report Type: 
  Country: None (occurrence: None)
  Receive Date: 20101124
  Receipt Date: 20101025
  Transmission Date: 20110411
  Serious: Yes (Death)
  Sender: FDA-Public Use
  Company Number: 012062

PATIENT
  Sex: Male
  Weight: 104 kg

DRUGS (2)
  1. LACOSAMIDE [Suspect]
     Indication: EPILEPSY
     Dosage: (700 MG, 300MG QAM, 400MG QPM ORAL)
     Route: 048
     Dates: start: 20091227, end: 20100418
  2. OXCARBAZEPINE [Concomitant]

REACTIONS (1)
  - DROWNING [None]
